FAERS Safety Report 7252900-5 (Version None)
Quarter: 2011Q1

REPORT INFORMATION
  Report Type: 
  Country: None (occurrence: None)
  Receive Date: 20110129
  Receipt Date: 20100302
  Transmission Date: 20110831
  Serious: No
  Sender: FDA-Public Use
  Company Number: US-ABBOTT-10P-163-0629642-00

PATIENT
  Sex: Female
  Weight: 71.732 kg

DRUGS (7)
  1. VITAMIN D [Concomitant]
     Indication: HYPOVITAMINOSIS
  2. HUMIRA [Suspect]
     Indication: RHEUMATOID ARTHRITIS
     Dates: start: 20090101
  3. HUMIRA [Suspect]
     Dates: end: 20070101
  4. LEVOTHYROXINE SODIUM [Concomitant]
     Indication: GOITRE
  5. B3 [Concomitant]
     Indication: VITAMIN SUPPLEMENTATION
  6. DILTIAZEM [Concomitant]
     Indication: HYPERTENSION
  7. ASPIRIN [Concomitant]
     Indication: ROUTINE HEALTH MAINTENANCE

REACTIONS (3)
  - DRUG EFFECT DECREASED [None]
  - SINUSITIS [None]
  - NASOPHARYNGITIS [None]
